FAERS Safety Report 24551163 (Version 1)
Quarter: 2024Q4

REPORT INFORMATION
  Report Type: Spontaneous
  Country: US (occurrence: US)
  Receive Date: 20241025
  Receipt Date: 20241025
  Transmission Date: 20250115
  Serious: No
  Sender: EISAI
  Company Number: US-Eisai-EC-2024-176557

PATIENT
  Age: 74 Year
  Sex: Male

DRUGS (3)
  1. LENVATINIB [Suspect]
     Active Substance: LENVATINIB
     Indication: Hepatocellular carcinoma
     Route: 048
  2. LENVATINIB [Suspect]
     Active Substance: LENVATINIB
     Route: 048
  3. LENVATINIB [Suspect]
     Active Substance: LENVATINIB
     Route: 048

REACTIONS (5)
  - Presyncope [Recovering/Resolving]
  - Dizziness [Recovering/Resolving]
  - Weight decreased [Unknown]
  - Failure to thrive [Recovering/Resolving]
  - Decreased appetite [Unknown]
